FAERS Safety Report 12799005 (Version 1)
Quarter: 2016Q3

REPORT INFORMATION
  Report Type: Spontaneous
  Country: US (occurrence: US)
  Receive Date: 20160930
  Receipt Date: 20160930
  Transmission Date: 20161109
  Serious: Yes (Other)
  Sender: FDA-Public Use
  Company Number: US-PFIZER INC-2016415401

PATIENT
  Age: 62 Year
  Sex: Female

DRUGS (6)
  1. OXYCODONE [Concomitant]
     Active Substance: OXYCODONE
     Dosage: 15 MG, AS NEEDED
     Dates: start: 201406
  2. CHANTIX [Suspect]
     Active Substance: VARENICLINE TARTRATE
     Indication: SMOKING CESSATION THERAPY
     Dosage: 1 MG, 2X/DAY
     Route: 048
     Dates: start: 20150824
  3. FENTANYL. [Concomitant]
     Active Substance: FENTANYL
     Dosage: 100 MG, UNK
     Route: 061
     Dates: start: 201002
  4. VITAMIN D3 [Concomitant]
     Active Substance: CHOLECALCIFEROL
     Dosage: UNK
     Dates: start: 201507
  5. PROZAC [Concomitant]
     Active Substance: FLUOXETINE HYDROCHLORIDE
     Dosage: 10 MG, 2X/DAY
     Dates: start: 201510
  6. MELATONIN [Concomitant]
     Active Substance: MELATONIN
     Dosage: UNK UNK, 1X/DAY (AT BEDTIME)

REACTIONS (5)
  - Seizure [Recovered/Resolved]
  - Nervousness [Recovered/Resolved]
  - Mood altered [Recovered/Resolved]
  - Dizziness [Recovered/Resolved]
  - Depression [Recovered/Resolved]
